FAERS Safety Report 15316274 (Version 1)
Quarter: 2018Q3

REPORT INFORMATION
  Report Type: Spontaneous
  Country: US (occurrence: US)
  Receive Date: 20180816
  Receipt Date: 20180816
  Transmission Date: 20181010
  Serious: Yes (Other)
  Sender: FDA-Public Use
  Company Number: None

PATIENT
  Age: 47 Year
  Sex: Male
  Weight: 105.75 kg

DRUGS (5)
  1. ATORVASTATIN [Concomitant]
     Active Substance: ATORVASTATIN
  2. OSCAL [Concomitant]
     Active Substance: CALCIUM CARBONATE
  3. REMICADE [Suspect]
     Active Substance: INFLIXIMAB
     Indication: COLITIS ULCERATIVE
     Dosage: ?          OTHER FREQUENCY:EVERY 8 WEEKS;OTHER ROUTE:INFUSION?
     Dates: start: 20160518, end: 20180613
  4. SULFASALAZINE. [Concomitant]
     Active Substance: SULFASALAZINE
  5. FOLIC ACID. [Concomitant]
     Active Substance: FOLIC ACID

REACTIONS (2)
  - Muscular weakness [None]
  - Musculoskeletal disorder [None]

NARRATIVE: CASE EVENT DATE: 20180108
